FAERS Safety Report 20444305 (Version 2)
Quarter: 2022Q1

REPORT INFORMATION
  Report Type: Spontaneous
  Country: JP (occurrence: JP)
  Receive Date: 20220208
  Receipt Date: 20220330
  Transmission Date: 20220423
  Serious: Yes (Death, Other)
  Sender: FDA-Public Use
  Company Number: JP-PFIZER INC-202200169637

PATIENT
  Age: 72 Year
  Sex: Male
  Weight: 80.2 kg

DRUGS (14)
  1. METHOTREXATE [Suspect]
     Active Substance: METHOTREXATE
     Indication: Lymphoma
     Dosage: 4600 MG, 1X/DAY
     Route: 042
     Dates: start: 20211224, end: 20211224
  2. METHOTREXATE [Suspect]
     Active Substance: METHOTREXATE
     Dosage: 4800 MG, 1X/DAY
     Route: 042
     Dates: start: 20220107, end: 20220107
  3. TENELIGLIPTIN [Suspect]
     Active Substance: TENELIGLIPTIN
     Indication: Diabetes mellitus
     Dosage: 20 MG, 1X/DAY
     Route: 048
     Dates: start: 20180921, end: 20220111
  4. SULFAMETHOXAZOLE\TRIMETHOPRIM [Suspect]
     Active Substance: SULFAMETHOXAZOLE\TRIMETHOPRIM
     Indication: Infection prophylaxis
     Dosage: 0.5 DF, 1X/DAY
     Route: 048
     Dates: start: 20220104, end: 20220111
  5. RITUXAN [Concomitant]
     Active Substance: RITUXIMAB
     Dosage: UNK
  6. ONCOVIN [Concomitant]
     Active Substance: VINCRISTINE SULFATE
     Indication: Lymphoma
     Dosage: 1.7 MG, 1X/DAY
     Route: 041
     Dates: start: 20211224, end: 20211224
  7. ONCOVIN [Concomitant]
     Active Substance: VINCRISTINE SULFATE
     Dosage: 1.7 MG, 1X/DAY
     Route: 041
     Dates: start: 20220107, end: 20220107
  8. DEXAMETHASONE SODIUM PHOSPHATE [Concomitant]
     Active Substance: DEXAMETHASONE SODIUM PHOSPHATE
     Indication: Lymphoma
     Dosage: 13.2 MG, 1X/DAY
     Route: 041
     Dates: start: 20211224, end: 20211224
  9. DEXAMETHASONE SODIUM PHOSPHATE [Concomitant]
     Active Substance: DEXAMETHASONE SODIUM PHOSPHATE
     Dosage: 13.2 MG, 1X/DAY
     Route: 041
     Dates: start: 20220107, end: 20220107
  10. GRANISETRON [Concomitant]
     Active Substance: GRANISETRON
     Indication: Prophylaxis of nausea and vomiting
     Dosage: 3 MG, 1X/DAY
     Route: 041
     Dates: start: 20211224, end: 20211224
  11. GRANISETRON [Concomitant]
     Active Substance: GRANISETRON
     Dosage: 3 MG, 1X/DAY
     Route: 041
     Dates: start: 20220107, end: 20220107
  12. NEXIUM [ESOMEPRAZOLE MAGNESIUM TRIHYDRATE] [Concomitant]
     Indication: Gastrooesophageal reflux disease
     Dosage: 20 MG, 1X/DAY
     Route: 048
     Dates: start: 20180921, end: 20220123
  13. EDOXABAN TOSYLATE [Concomitant]
     Active Substance: EDOXABAN TOSYLATE
     Indication: Atrial fibrillation
     Dosage: 60 MG, 1X/DAY
     Route: 048
     Dates: start: 20211218, end: 20220111
  14. MAGNESIUM OXIDE [Concomitant]
     Active Substance: MAGNESIUM OXIDE
     Dosage: UNK

REACTIONS (5)
  - Multiple organ dysfunction syndrome [Fatal]
  - Toxic epidermal necrolysis [Fatal]
  - Renal disorder [Fatal]
  - Liver disorder [Fatal]
  - Bone marrow failure [Fatal]

NARRATIVE: CASE EVENT DATE: 20220113
